FAERS Safety Report 6592107-8 (Version None)
Quarter: 2010Q1

REPORT INFORMATION
  Report Type: 
  Country: None (occurrence: None)
  Receive Date: 20100221
  Receipt Date: 20090901
  Transmission Date: 20100710
  Serious: No
  Sender: FDA-Public Use
  Company Number: US-ALLERGAN-0912205US

PATIENT
  Age: 4 Year
  Sex: Male

DRUGS (2)
  1. BOTOX [Suspect]
     Indication: CEREBRAL PALSY
     Dosage: 80 UNITS, SINGLE
     Route: 030
     Dates: start: 20090807, end: 20090807
  2. BOTOX [Suspect]
     Dosage: UNK
     Route: 030

REACTIONS (1)
  - DYSPHEMIA [None]
